FAERS Safety Report 6395604-3 (Version None)
Quarter: 2009Q4

REPORT INFORMATION
  Report Type: 
  Country: None (occurrence: None)
  Receive Date: 20091006
  Receipt Date: 20090922
  Transmission Date: 20100525
  Serious: Yes (Hospitalization)
  Sender: FDA-Public Use
  Company Number: JPI-P-008454

PATIENT
  Age: 15 Year
  Sex: Female
  Weight: 45.8133 kg

DRUGS (2)
  1. XYREM [Suspect]
     Indication: NARCOLEPSY
     Dosage: 6 GM (3 GM, 2 IN 1 D), ORAL, 4.5 GM (2.25 GM, 2 IN 1 D), ORAL
     Route: 048
     Dates: start: 20090828, end: 20090910
  2. QUETIAPINE FUMARATE [Suspect]
     Indication: BIPOLAR DISORDER
     Dates: start: 20090801

REACTIONS (8)
  - ANXIETY [None]
  - CONDITION AGGRAVATED [None]
  - FORMICATION [None]
  - INTENTIONAL SELF-INJURY [None]
  - SKIN LACERATION [None]
  - SLEEP DISORDER [None]
  - SOCIAL FEAR [None]
  - STRESS [None]
